FAERS Safety Report 8783973 (Version 1)
Quarter: 2012Q4

REPORT INFORMATION
  Report Type: 
  Country: US (occurrence: US)
  Receive Date: 20120913
  Receipt Date: 20120913
  Transmission Date: 20130627
  Serious: No
  Sender: FDA-Public Use
  Company Number: US-VERTEX PHARMACEUTICAL INC.-AE-2012-009319

PATIENT
  Sex: Male
  Weight: 79 kg

DRUGS (20)
  1. INCIVEK [Suspect]
     Indication: HEPATITIS C
     Route: 048
  2. INCIVEK [Suspect]
     Route: 048
  3. PEGASYS [Concomitant]
     Indication: HEPATITIS C
  4. PEGASYS [Concomitant]
  5. RIBAVIRIN [Concomitant]
     Indication: HEPATITIS C
  6. RIBAVIRIN [Concomitant]
  7. JANUVIA [Concomitant]
  8. JANUVIA [Concomitant]
  9. A+D PREVENT OIN [Concomitant]
  10. METFORMIN [Concomitant]
  11. METFORMIN [Concomitant]
  12. QUINAPRIL [Concomitant]
  13. QUINAPRIL [Concomitant]
  14. LABETALOL [Concomitant]
  15. LABETALOL [Concomitant]
  16. ALLOPURINOL [Concomitant]
  17. ALLOPURINOL [Concomitant]
  18. BAYER ASA [Concomitant]
  19. CLOPIDOGREL [Concomitant]
  20. CLOPIDOGREL [Concomitant]

REACTIONS (2)
  - Blood urine present [Unknown]
  - Rash [Unknown]
